FAERS Safety Report 9048513 (Version 1)
Quarter: 2013Q1

REPORT INFORMATION
  Report Type: Spontaneous
  Country: US (occurrence: None)
  Receive Date: 20130130
  Receipt Date: 20130130
  Transmission Date: 20140127
  Serious: Yes (Hospitalization)
  Sender: FDA-Public Use
  Company Number: None

PATIENT
  Age: 33 Year
  Sex: Female
  Weight: 65.8 kg

DRUGS (4)
  1. LYMPHAZURIN [Suspect]
     Indication: BIOPSY LYMPH GLAND
     Dosage: 50 ML ONCE IV TO RIGHT BREAST
     Route: 042
  2. VERSED [Concomitant]
  3. ANCEF [Concomitant]
  4. LR [Concomitant]

REACTIONS (2)
  - Injection site extravasation [None]
  - Anaphylactic reaction [None]
